FAERS Safety Report 9364183 (Version 6)
Quarter: 2013Q4

REPORT INFORMATION
  Report Type: Spontaneous
  Country: JP (occurrence: JP)
  Receive Date: 20130624
  Receipt Date: 20131212
  Transmission Date: 20140711
  Serious: Yes (Hospitalization, Other)
  Sender: FDA-Public Use
  Company Number: JP-PFIZER INC-2013183781

PATIENT
  Age: 74 Year
  Sex: Male

DRUGS (6)
  1. AZULFIDINE EN [Suspect]
     Indication: RHEUMATOID ARTHRITIS
     Dosage: 250 MG, 2X/DAY
     Route: 048
     Dates: start: 20120113
  2. BAYASPIRIN [Concomitant]
     Indication: ANGINA PECTORIS
     Dosage: 100 MG, 1X/DAY
     Route: 048
  3. DILTIAZEM HYDROCHLORIDE [Concomitant]
     Indication: ANGINA PECTORIS
     Dosage: 100 MG, 2X/DAY
     Route: 048
  4. ITOROL [Concomitant]
     Indication: ANGINA PECTORIS
     Dosage: 20 MG, 2X/DAY
     Route: 048
  5. CRESTOR [Concomitant]
     Indication: DYSLIPIDAEMIA
     Dosage: 2.5 MG, 1X/DAY
     Route: 048
  6. XYZAL [Concomitant]
     Indication: RHINITIS ALLERGIC
     Dosage: 5 MG, 1X/DAY

REACTIONS (1)
  - Hepatitis B [Recovering/Resolving]
